FAERS Safety Report 6482844-8 (Version None)
Quarter: 2009Q4

REPORT INFORMATION
  Report Type: 
  Country: None (occurrence: None)
  Receive Date: 20091209
  Receipt Date: 20091201
  Transmission Date: 20100525
  Serious: Yes (Hospitalization, Disabling, Other)
  Sender: FDA-Public Use
  Company Number: GB-JNJFOC-20091200638

PATIENT
  Age: 27 Year
  Sex: Female
  Weight: 50 kg

DRUGS (3)
  1. TOPAMAX [Suspect]
     Indication: MIGRAINE PROPHYLAXIS
     Route: 065
  2. PROZAC [Concomitant]
     Indication: DRUG USE FOR UNKNOWN INDICATION
     Route: 065
  3. SOLPADEINE PLUS [Concomitant]
     Indication: DRUG USE FOR UNKNOWN INDICATION
     Route: 065

REACTIONS (7)
  - CRYING [None]
  - DYSKINESIA [None]
  - PARAESTHESIA [None]
  - PARAESTHESIA ORAL [None]
  - PARANOIA [None]
  - POLYURIA [None]
  - SUICIDAL IDEATION [None]
